FAERS Safety Report 8602931-5 (Version None)
Quarter: 2012Q3

REPORT INFORMATION
  Report Type: 
  Country: None (occurrence: None)
  Receive Date: 20120817
  Receipt Date: 20120807
  Transmission Date: 20120928
  Serious: Yes (Other)
  Sender: FDA-Public Use
  Company Number: CN-B.I. PHARMACEUTICALS,INC./RIDGEFIELD-2012-BP-19322BP

PATIENT
  Sex: Female

DRUGS (3)
  1. MELOXICAM [Suspect]
     Indication: INFECTION
     Route: 048
     Dates: start: 20110128, end: 20110203
  2. COMMON COLD [Suspect]
     Indication: NASOPHARYNGITIS
     Route: 048
     Dates: start: 20110128, end: 20110203
  3. MELOXICAM [Suspect]
     Indication: MENINGITIS

REACTIONS (1)
  - ABORTION [None]
